FAERS Safety Report 10362720 (Version 1)
Quarter: 2014Q3

REPORT INFORMATION
  Report Type: Spontaneous
  Country: FR (occurrence: FR)
  Receive Date: 20140805
  Receipt Date: 20140805
  Transmission Date: 20150326
  Serious: Yes (Death, Life-Threatening, Hospitalization)
  Sender: FDA-Public Use
  Company Number: FR-SA-2014SA103268

PATIENT
  Age: 74 Year
  Sex: Female

DRUGS (13)
  1. GENTAMICIN ^PANPHARMA^ [Suspect]
     Active Substance: GENTAMICIN
     Indication: PRODUCT USED FOR UNKNOWN INDICATION
     Dosage: 2MG/L?600MG
     Route: 042
     Dates: start: 20140623, end: 20140701
  2. LANTUS [Concomitant]
     Active Substance: INSULIN GLARGINE
  3. GENTAMICIN ^PANPHARMA^ [Suspect]
     Active Substance: GENTAMICIN
     Indication: PRODUCT USED FOR UNKNOWN INDICATION
     Dosage: 4.5MG/L?13.7MG/L
     Route: 042
     Dates: start: 20140622, end: 20140622
  4. ZOCOR [Concomitant]
     Active Substance: SIMVASTATIN
  5. OFLOCET [Suspect]
     Active Substance: OFLOXACIN
     Indication: PRODUCT USED FOR UNKNOWN INDICATION
     Route: 048
     Dates: start: 20140701, end: 20140708
  6. VANCOMYCIN [Suspect]
     Active Substance: VANCOMYCIN
     Indication: PRODUCT USED FOR UNKNOWN INDICATION
     Dosage: 10.5MG/L?2G
     Route: 042
     Dates: start: 20140623, end: 20140701
  7. VANCOMYCIN [Suspect]
     Active Substance: VANCOMYCIN
     Indication: PRODUCT USED FOR UNKNOWN INDICATION
     Dosage: DOSE:6 MILLIGRAM(S)/LITRE
     Route: 042
     Dates: start: 20140622, end: 20140622
  8. SERECOR [Concomitant]
     Active Substance: HYDROQUINIDINE HYDROCHLORIDE
  9. LASILIX [Concomitant]
     Active Substance: FUROSEMIDE
  10. INEXIUM [Concomitant]
     Active Substance: ESOMEPRAZOLE
  11. DOLIPRANE [Concomitant]
     Active Substance: ACETAMINOPHEN
  12. ACUPAN [Concomitant]
     Active Substance: NEFOPAM HYDROCHLORIDE
  13. LOVENOX [Suspect]
     Active Substance: ENOXAPARIN SODIUM
     Indication: PRODUCT USED FOR UNKNOWN INDICATION
     Route: 058
     Dates: start: 20140619, end: 20140707

REACTIONS (2)
  - Thrombocytopenia [Fatal]
  - Renal failure [Fatal]

NARRATIVE: CASE EVENT DATE: 20140628
